FAERS Safety Report 9640012 (Version 1)
Quarter: 2013Q4

REPORT INFORMATION
  Report Type: Spontaneous
  Country: GB (occurrence: GB)
  Receive Date: 20131023
  Receipt Date: 20131023
  Transmission Date: 20140711
  Serious: Yes (Hospitalization, Other)
  Sender: FDA-Public Use
  Company Number: PHFR2013GB005902

PATIENT
  Age: 50 Year
  Sex: Female

DRUGS (2)
  1. CLOZARIL [Suspect]
     Indication: SCHIZOPHRENIA
     Dosage: UNK
     Route: 048
     Dates: start: 20100317
  2. CLOZARIL [Suspect]
     Dosage: UNK
     Dates: start: 20131009

REACTIONS (5)
  - Overdose [Unknown]
  - Epilepsy [Unknown]
  - Diabetes mellitus [Unknown]
  - Mobility decreased [Unknown]
  - Weight increased [Unknown]
